FAERS Safety Report 25109132 (Version 1)
Quarter: 2025Q1

REPORT INFORMATION
  Report Type: Other
  Country: US (occurrence: US)
  Receive Date: 20250322
  Receipt Date: 20250322
  Transmission Date: 20250409
  Serious: Yes (Hospitalization, Other)
  Sender: LYNE LABORATORIES
  Company Number: US-Lyne Laboratories Inc.-2173454

PATIENT
  Age: 14 Year
  Sex: Female
  Weight: 53.6 kg

DRUGS (6)
  1. CLINDAMYCIN PALMITATE HYDROCHLORIDE [Suspect]
     Active Substance: CLINDAMYCIN PALMITATE HYDROCHLORIDE
     Indication: Cellulitis
  2. PIPERACILLIN AND TAZOBACTAM [Suspect]
     Active Substance: PIPERACILLIN SODIUM\TAZOBACTAM SODIUM
  3. CLOTRIMAZOLE [Concomitant]
     Active Substance: CLOTRIMAZOLE
  4. CEPHALEXIN [Concomitant]
     Active Substance: CEPHALEXIN
  5. IBUPROFEN [Suspect]
     Active Substance: IBUPROFEN
  6. VANCOMYCIN HYDROCHLORIDE [Suspect]
     Active Substance: VANCOMYCIN HYDROCHLORIDE

REACTIONS (4)
  - Acute kidney injury [Recovered/Resolved]
  - Product use in unapproved indication [Unknown]
  - Hypertension [Recovered/Resolved]
  - Nephropathy toxic [Recovered/Resolved]
